FAERS Safety Report 10982027 (Version 1)
Quarter: 2015Q2

REPORT INFORMATION
  Report Type: Spontaneous
  Country: NZ (occurrence: NZ)
  Receive Date: 20150403
  Receipt Date: 20150403
  Transmission Date: 20150821
  Serious: Yes (Other)
  Sender: FDA-Public Use
  Company Number: PHHY2015NZ037488

PATIENT
  Age: 28 Year
  Sex: Male

DRUGS (5)
  1. ASPIRIN. [Concomitant]
     Active Substance: ASPIRIN
     Indication: PRODUCT USED FOR UNKNOWN INDICATION
     Route: 065
  2. CODEINE PHOSPHATE [Concomitant]
     Active Substance: CODEINE PHOSPHATE
     Indication: PRODUCT USED FOR UNKNOWN INDICATION
     Route: 065
  3. ACE//PARACETAMOL [Concomitant]
     Indication: PRODUCT USED FOR UNKNOWN INDICATION
     Route: 065
  4. BENZYLPENICILLIN [Suspect]
     Active Substance: PENICILLIN G
     Indication: DEVICE RELATED INFECTION
     Dosage: 8MU/DAY OR 12 MU/DAY DILUTED IN 20 ML OF WATER
     Route: 040
  5. VENLAFAXINE HYDROCHLORIDE. [Concomitant]
     Active Substance: VENLAFAXINE HYDROCHLORIDE
     Indication: PRODUCT USED FOR UNKNOWN INDICATION
     Route: 065

REACTIONS (6)
  - Neutrophil count decreased [Unknown]
  - Fatigue [Unknown]
  - Flank pain [Unknown]
  - Abdominal pain [Unknown]
  - Lymphocyte count decreased [Unknown]
  - Myalgia [Unknown]
